FAERS Safety Report 11890730 (Version 1)
Quarter: 2016Q1

REPORT INFORMATION
  Report Type: Spontaneous
  Country: US (occurrence: US)
  Receive Date: 20160105
  Receipt Date: 20160105
  Transmission Date: 20160526
  Serious: Yes (Other)
  Sender: FDA-Public Use
  Company Number: US-CELGENEUS-USA-2015117921

PATIENT
  Sex: Male
  Weight: 69.92 kg

DRUGS (2)
  1. REVLIMID [Suspect]
     Active Substance: LENALIDOMIDE
     Route: 048
     Dates: start: 20151104
  2. REVLIMID [Suspect]
     Active Substance: LENALIDOMIDE
     Indication: PLASMA CELL MYELOMA
     Route: 048
     Dates: start: 201509

REACTIONS (4)
  - Decreased appetite [Unknown]
  - Paraesthesia [Unknown]
  - Weight decreased [Unknown]
  - Constipation [Unknown]

NARRATIVE: CASE EVENT DATE: 2015
